FAERS Safety Report 17504352 (Version 1)
Quarter: 2020Q1

REPORT INFORMATION
  Report Type: Spontaneous
  Country: US (occurrence: US)
  Receive Date: 20200305
  Receipt Date: 20200305
  Transmission Date: 20200409
  Serious: No
  Sender: FDA-Public Use
  Company Number: US-009507513-2003USA001651

PATIENT
  Sex: Female
  Weight: 83.9 kg

DRUGS (1)
  1. PRINIVIL [Suspect]
     Active Substance: LISINOPRIL
     Indication: SLEEP DISORDER
     Dosage: 25 MILLIGRAM, QD
     Route: 048

REACTIONS (1)
  - Product use in unapproved indication [Unknown]
